FAERS Safety Report 20264383 (Version 3)
Quarter: 2022Q1

REPORT INFORMATION
  Report Type: Report from Study
  Country: US (occurrence: US)
  Receive Date: 20211231
  Receipt Date: 20220211
  Transmission Date: 20220424
  Serious: No
  Sender: FDA-Public Use
  Company Number: US-NOVARTISTESTPH-NVSC2021US300197

PATIENT
  Sex: Female

DRUGS (2)
  1. ENTRESTO [Suspect]
     Active Substance: SACUBITRIL\VALSARTAN
     Indication: Product used for unknown indication
     Dosage: UNK
     Route: 065
  2. ENTRESTO [Suspect]
     Active Substance: SACUBITRIL\VALSARTAN
     Dosage: 1 DOSAGE FORM(24/26 MG)
     Route: 048
     Dates: start: 202112

REACTIONS (6)
  - Weight decreased [Unknown]
  - Hypoacusis [Not Recovered/Not Resolved]
  - Insomnia [Unknown]
  - Fluid retention [Unknown]
  - Product dose omission issue [Unknown]
  - Incorrect dose administered [Unknown]
